FAERS Safety Report 5170329-0 (Version None)
Quarter: 2006Q4

REPORT INFORMATION
  Report Type: 
  Country: None (occurrence: None)
  Receive Date: 20061204
  Receipt Date: 20061121
  Transmission Date: 20070319
  Serious: Yes (Death, Hospitalization)
  Sender: FDA-Public Use
  Company Number: 2006JP004695

PATIENT
  Age: 72 Year
  Sex: Female
  Weight: 48.8 kg

DRUGS (11)
  1. TACROLIMUS CAPSULES(TACROLIMUS CAPSULES)(TACROLIMUS) CAPSULE [Suspect]
     Indication: RHEUMATOID ARTHRITIS
     Dosage: SEE IMAGE, ORAL
     Route: 048
     Dates: start: 20060608, end: 20060816
  2. TACROLIMUS CAPSULES(TACROLIMUS CAPSULES)(TACROLIMUS) CAPSULE [Suspect]
     Indication: RHEUMATOID ARTHRITIS
     Dosage: SEE IMAGE, ORAL
     Route: 048
     Dates: start: 20060905, end: 20060925
  3. PREDNISOLONE [Suspect]
     Dosage: SEE IMAGE, ORAL
     Route: 048
     Dates: start: 20060704, end: 20060821
  4. PREDNISOLONE [Suspect]
     Dosage: SEE IMAGE, ORAL
     Route: 048
     Dates: start: 20060825, end: 20060828
  5. PREDNISOLONE [Suspect]
     Dosage: SEE IMAGE, ORAL
     Route: 048
     Dates: start: 20060829, end: 20060904
  6. PREDNISOLONE [Suspect]
     Dosage: SEE IMAGE, ORAL
     Route: 048
     Dates: start: 20060905, end: 20060926
  7. PREDNISOLONE [Suspect]
     Dosage: SEE IMAGE, ORAL
     Route: 048
     Dates: start: 20060927, end: 20061003
  8. PREDNISOLONE [Suspect]
     Dosage: SEE IMAGE
     Dates: start: 20060822, end: 20060824
  9. PREDNISOLONE [Suspect]
     Dosage: SEE IMAGE
     Dates: start: 20060825, end: 20060828
  10. LIMETHASONE (GLYCEROL, DEXAMETHASONE PALMITATE, LECITHIN, GLYCINE MAX [Concomitant]
  11. BLOPRESS (CANDESARTAN CILEXETIL) [Concomitant]

REACTIONS (17)
  - BACTERIA SPUTUM IDENTIFIED [None]
  - BETA 2 MICROGLOBULIN URINE INCREASED [None]
  - BLOOD PRESSURE DECREASED [None]
  - CARDIAC ARREST [None]
  - CHLAMYDIAL INFECTION [None]
  - CHOLECYSTITIS [None]
  - CONDITION AGGRAVATED [None]
  - CYTOMEGALOVIRUS INFECTION [None]
  - DISSEMINATED INTRAVASCULAR COAGULATION [None]
  - DRUG INEFFECTIVE [None]
  - EOSINOPHIL COUNT INCREASED [None]
  - FUNGAL INFECTION [None]
  - GENERAL PHYSICAL HEALTH DETERIORATION [None]
  - INTERSTITIAL LUNG DISEASE [None]
  - LIVER DISORDER [None]
  - STAPHYLOCOCCAL INFECTION [None]
  - WHITE BLOOD CELL COUNT INCREASED [None]
